FAERS Safety Report 26181004 (Version 1)
Quarter: 2025Q4

REPORT INFORMATION
  Report Type: Report from Study
  Country: JP (occurrence: JP)
  Receive Date: 20251221
  Receipt Date: 20251221
  Transmission Date: 20260117
  Serious: Yes (Other)
  Sender: BridgeBio Pharma
  Company Number: JP-BRIDGEBIO-25JP002582

PATIENT

DRUGS (1)
  1. ACORAMIDIS [Suspect]
     Active Substance: ACORAMIDIS
     Indication: Cardiac amyloidosis
     Dosage: 800 MILLIGRAM, BID
     Route: 065
     Dates: start: 20250916

REACTIONS (6)
  - Cerebral infarction [Recovering/Resolving]
  - Carotid artery aneurysm [Not Recovered/Not Resolved]
  - Arrhythmia [Unknown]
  - Renal impairment [Recovered/Resolved]
  - Arteriosclerosis [Not Recovered/Not Resolved]
  - Product dose omission issue [Unknown]

NARRATIVE: CASE EVENT DATE: 20251006
